FAERS Safety Report 11185780 (Version 1)
Quarter: 2015Q2

REPORT INFORMATION
  Report Type: Spontaneous
  Country: US (occurrence: US)
  Receive Date: 20150612
  Receipt Date: 20150612
  Transmission Date: 20150821
  Serious: No
  Sender: FDA-Public Use
  Company Number: US-DSJP-DSU-2015-101344

PATIENT
  Sex: Female

DRUGS (1)
  1. BENICAR [Suspect]
     Active Substance: OLMESARTAN MEDOXOMIL
     Indication: BLOOD PRESSURE
     Dosage: UNK
     Route: 048

REACTIONS (3)
  - Throat tightness [Unknown]
  - Bronchitis [Unknown]
  - Influenza like illness [Unknown]
